FAERS Safety Report 4737808-9 (Version None)
Quarter: 2005Q3

REPORT INFORMATION
  Report Type: 
  Country: None (occurrence: None)
  Receive Date: 20050809
  Receipt Date: 20050705
  Transmission Date: 20060218
  Serious: Yes (Hospitalization)
  Sender: FDA-Public Use
  Company Number: GB-SP-2005-01278

PATIENT
  Sex: Male

DRUGS (6)
  1. IMMUCYST [Suspect]
     Indication: BLADDER CANCER
     Dosage: 81 MG WEEKLY
     Route: 043
     Dates: start: 20050114
  2. DIGOXIN [Concomitant]
     Dosage: LONG TERM
  3. VERAPAMIL [Concomitant]
     Dosage: LONG TERM
  4. WARFARIN SODIUM [Concomitant]
  5. FUROSEMIDE [Concomitant]
     Dosage: LON TERM
  6. ENALAPRIL [Concomitant]
     Dosage: LONG TERM

REACTIONS (10)
  - BACTERIAL INFECTION [None]
  - BOVINE TUBERCULOSIS [None]
  - CANDIDIASIS [None]
  - CULTURE WOUND POSITIVE [None]
  - HYDROCELE MALE INFECTED [None]
  - ORCHITIS [None]
  - PAIN [None]
  - TESTICULAR SWELLING [None]
  - WOUND DECOMPOSITION [None]
  - WOUND SECRETION [None]
